FAERS Safety Report 16595112 (Version 1)
Quarter: 2019Q3

REPORT INFORMATION
  Report Type: Spontaneous
  Country: IN (occurrence: IN)
  Receive Date: 20190718
  Receipt Date: 20190718
  Transmission Date: 20191004
  Serious: Yes (Hospitalization)
  Sender: FDA-Public Use
  Company Number: PHHY2019IN162485

PATIENT
  Age: 11 Year
  Sex: Male

DRUGS (5)
  1. CHLORPHENAMINE [Suspect]
     Active Substance: CHLORPHENIRAMINE MALEATE
     Indication: COUGH
     Dosage: 1 MG, UNK
     Route: 065
  2. PHENYLEPHRINE [Suspect]
     Active Substance: PHENYLEPHRINE HYDROCHLORIDE
     Indication: COUGH
     Dosage: 5 MG, UNK
     Route: 065
  3. SODIUM CITRATE. [Suspect]
     Active Substance: SODIUM CITRATE
     Indication: COUGH
     Dosage: 60 MG, UNK
     Route: 065
  4. PARACETAMOL [Suspect]
     Active Substance: ACETAMINOPHEN
     Indication: PYREXIA
     Dosage: 1.35 G, UNK (SYRUP)
     Route: 065
  5. PARACETAMOL [Suspect]
     Active Substance: ACETAMINOPHEN
     Dosage: 125 MG, UNK
     Route: 065

REACTIONS (8)
  - Haematuria [Recovered/Resolved]
  - Bronchiolitis [Recovering/Resolving]
  - Lethargy [Recovering/Resolving]
  - Jaundice [Recovering/Resolving]
  - Accidental overdose [Unknown]
  - Pallor [Recovering/Resolving]
  - Haemolysis [Recovering/Resolving]
  - Eye colour change [Recovering/Resolving]
